FAERS Safety Report 9964886 (Version 1)
Quarter: 2014Q1

REPORT INFORMATION
  Report Type: Spontaneous
  Country: US (occurrence: US)
  Receive Date: 20140305
  Receipt Date: 20140305
  Transmission Date: 20141002
  Serious: No
  Sender: FDA-Public Use
  Company Number: US-AMGEN-USASP2014007272

PATIENT
  Sex: Male

DRUGS (2)
  1. ENBREL [Suspect]
     Indication: PSORIASIS
     Dosage: 50 MG, 2 TIMES/WK
     Route: 065
     Dates: start: 20130930, end: 201401
  2. HUMIRA [Concomitant]
     Dosage: 50 MG, 2 TIMES/WK
     Dates: start: 201401

REACTIONS (1)
  - Drug effect incomplete [Not Recovered/Not Resolved]
